FAERS Safety Report 12559309 (Version 1)
Quarter: 2016Q3

REPORT INFORMATION
  Report Type: Report from Study
  Country: MX (occurrence: MX)
  Receive Date: 20160715
  Receipt Date: 20160715
  Transmission Date: 20161109
  Serious: Yes (Death)
  Sender: FDA-Public Use
  Company Number: MX-ROCHE-1795010

PATIENT
  Age: 70 Year
  Weight: 72 kg

DRUGS (3)
  1. KADCYLA [Suspect]
     Active Substance: ADO-TRASTUZUMAB EMTANSINE
     Dosage: 2 CYCLES APPLIED
     Route: 042
     Dates: start: 20150428, end: 20150428
  2. KADCYLA [Suspect]
     Active Substance: ADO-TRASTUZUMAB EMTANSINE
     Dosage: 2 CYCLES APPLIED
     Route: 042
     Dates: start: 20150526, end: 20150526
  3. KADCYLA [Suspect]
     Active Substance: ADO-TRASTUZUMAB EMTANSINE
     Indication: BREAST CANCER
     Dosage: 2 CYCLES APPLIED
     Route: 042
     Dates: start: 20150407, end: 20150407

REACTIONS (2)
  - Off label use [Fatal]
  - Death [Fatal]
